FAERS Safety Report 23448160 (Version 1)
Quarter: 2024Q1

REPORT INFORMATION
  Report Type: Spontaneous
  Country: US (occurrence: US)
  Receive Date: 20240126
  Receipt Date: 20240126
  Transmission Date: 20240409
  Serious: No
  Sender: FDA-Public Use
  Company Number: US-TRAVERE-2023TVT00881

PATIENT
  Sex: Female

DRUGS (8)
  1. FILSPARI [Suspect]
     Active Substance: SPARSENTAN
     Indication: IgA nephropathy
     Dosage: 400 MG
     Route: 048
     Dates: start: 202306
  2. ALLOPURINOL [Concomitant]
     Active Substance: ALLOPURINOL
  3. Multivitamin 50+ [Concomitant]
  4. MAGNESIUM [Concomitant]
     Active Substance: MAGNESIUM
  5. TYLENOL [Concomitant]
     Active Substance: ACETAMINOPHEN
  6. LASIX [Concomitant]
     Active Substance: FUROSEMIDE
  7. COLLAGEN [Concomitant]
     Active Substance: COLLAGEN
  8. ROSUVASTATIN [Concomitant]
     Active Substance: ROSUVASTATIN

REACTIONS (1)
  - Neck pain [Unknown]
